FAERS Safety Report 9223338 (Version 2)
Quarter: 2013Q2

REPORT INFORMATION
  Report Type: Report from Study
  Country: GB (occurrence: GB)
  Receive Date: 20130410
  Receipt Date: 20130419
  Transmission Date: 20140414
  Serious: Yes (Hospitalization)
  Sender: FDA-Public Use
  Company Number: GB-PFIZER INC-2013108331

PATIENT
  Age: 64 Year
  Sex: Male

DRUGS (7)
  1. SUNITINIB MALATE [Suspect]
     Indication: TRANSITIONAL CELL CARCINOMA
     Dosage: 12.5 MG, UNK
     Dates: start: 20130103, end: 20130404
  2. GABAPENTIN [Concomitant]
     Dosage: 600 MG, 4X/DAY
     Route: 048
     Dates: start: 2008
  3. AMITRIPTYLINE [Concomitant]
     Dosage: 30 MG, 1X/DAY
     Route: 048
     Dates: start: 2008
  4. OMEPRAZOLE [Concomitant]
     Dosage: 20 MG, 1X/DAY
     Route: 048
     Dates: start: 2011
  5. BUPRENORPHINE [Concomitant]
     Dosage: 10 MG, HOURLY
     Route: 061
     Dates: start: 201201
  6. MAXOLON [Concomitant]
     Dosage: 10 MG, AS NEEDED
     Route: 048
     Dates: start: 20130104
  7. FILGRASTIM [Concomitant]
     Dosage: 48 UG, POST EACH CYCLE
     Route: 058
     Dates: start: 20130307

REACTIONS (1)
  - Cellulitis [Not Recovered/Not Resolved]
